FAERS Safety Report 12291168 (Version 1)
Quarter: 2016Q2

REPORT INFORMATION
  Report Type: Spontaneous
  Country: IN (occurrence: IN)
  Receive Date: 20160421
  Receipt Date: 20160421
  Transmission Date: 20160815
  Serious: Yes (Other)
  Sender: FDA-Public Use
  Company Number: IN-UNICHEM LABORATORIES LIMITED-UCM201407-000129

PATIENT

DRUGS (4)
  1. DIVALPROEX SODIUM. [Suspect]
     Active Substance: DIVALPROEX SODIUM
     Indication: BRAIN NEOPLASM MALIGNANT
  2. 13-CISRETINOIC ACID [Suspect]
     Active Substance: ISOTRETINOIN
     Indication: BRAIN NEOPLASM MALIGNANT
  3. ETOPOSIDE. [Suspect]
     Active Substance: ETOPOSIDE
     Indication: BRAIN NEOPLASM MALIGNANT
  4. TEMOZOLOMIDE. [Suspect]
     Active Substance: TEMOZOLOMIDE
     Indication: BRAIN NEOPLASM MALIGNANT

REACTIONS (2)
  - Product use issue [Unknown]
  - Myelodysplastic syndrome [Unknown]
